FAERS Safety Report 10090519 (Version 3)
Quarter: 2014Q2

REPORT INFORMATION
  Report Type: Spontaneous
  Country: US (occurrence: None)
  Receive Date: 20140417
  Receipt Date: 20140515
  Transmission Date: 20141212
  Serious: Yes (Death, Life-Threatening, Hospitalization)
  Sender: FDA-Public Use
  Company Number: UTC-047112

PATIENT
  Age: 53 Year
  Sex: Female
  Weight: 108.8 kg

DRUGS (1)
  1. REMODULIN [Suspect]
     Indication: COR PULMONALE CHRONIC
     Dosage: 20.16 UG/KG (0.014 UG/KG, 1 IN 1 MIN),INTRAVENOUS DRIP
     Route: 041
     Dates: start: 20140319, end: 20140414

REACTIONS (5)
  - Respiratory arrest [None]
  - Cyanosis [None]
  - Loss of consciousness [None]
  - Cerebrovascular accident [None]
  - Convulsion [None]
